FAERS Safety Report 12532423 (Version 2)
Quarter: 2017Q2

REPORT INFORMATION
  Report Type: Report from Study
  Country: US (occurrence: US)
  Receive Date: 20160706
  Receipt Date: 20170418
  Transmission Date: 20170830
  Serious: Yes (Hospitalization)
  Sender: FDA-Public Use
  Company Number: US-ACTELION-A-US2016-138622

PATIENT
  Age: 81 Year
  Sex: Female

DRUGS (17)
  1. CEPHALEXIN. [Concomitant]
     Active Substance: CEPHALEXIN
  2. CARVEDILOL. [Concomitant]
     Active Substance: CARVEDILOL
  3. FUROSEMIDE. [Concomitant]
     Active Substance: FUROSEMIDE
  4. NOVOLOG [Concomitant]
     Active Substance: INSULIN ASPART
  5. CIPROFLOXACIN. [Concomitant]
     Active Substance: CIPROFLOXACIN
  6. LEVEMIR [Concomitant]
     Active Substance: INSULIN DETEMIR
  7. AMLODIPINE [Concomitant]
     Active Substance: AMLODIPINE BESYLATE
  8. CLOBETASOL [Concomitant]
     Active Substance: CLOBETASOL
  9. TRACLEER [Suspect]
     Active Substance: BOSENTAN
     Indication: PULMONARY ARTERIAL HYPERTENSION
     Dosage: 125 MG, UNK
     Route: 048
     Dates: start: 20160531
  10. LISINOPRIL AND HYDROCHLOROTHIAZIDE [Concomitant]
     Active Substance: HYDROCHLOROTHIAZIDE\LISINOPRIL
  11. ZOLPIDEM [Concomitant]
     Active Substance: ZOLPIDEM\ZOLPIDEM TARTRATE
  12. CLONIDINE. [Concomitant]
     Active Substance: CLONIDINE
  13. SPIRONOLACTONE. [Concomitant]
     Active Substance: SPIRONOLACTONE
  14. DIGOXIN. [Concomitant]
     Active Substance: DIGOXIN
  15. METRONIDAZOLE. [Concomitant]
     Active Substance: METRONIDAZOLE
  16. FENOFIBRATE. [Concomitant]
     Active Substance: FENOFIBRATE
  17. ACETAMINOPHEN AND CODEINE [Concomitant]
     Active Substance: ACETAMINOPHEN\CODEINE PHOSPHATE

REACTIONS (4)
  - Haematemesis [Recovering/Resolving]
  - Dialysis [Recovering/Resolving]
  - Herpes zoster [Not Recovered/Not Resolved]
  - Seizure [Recovering/Resolving]

NARRATIVE: CASE EVENT DATE: 20170410
